FAERS Safety Report 17429120 (Version 1)
Quarter: 2020Q1

REPORT INFORMATION
  Report Type: Spontaneous
  Country: US (occurrence: US)
  Receive Date: 20200215
  Receipt Date: 20200215
  Transmission Date: 20200409
  Serious: Yes (Disabling)
  Sender: FDA-Public Use
  Company Number: None

PATIENT
  Age: 61 Year
  Sex: Female
  Weight: 130.5 kg

DRUGS (22)
  1. GLUTAMATE [Concomitant]
  2. GABAPENTIN (300-600MG) [Concomitant]
  3. SINUS ALLERGY (CHLORPHENIRAMINE, ACETAMINOPHEN, PHENYLEPHRINE) [Concomitant]
  4. OMEGA 3 [Concomitant]
     Active Substance: OMEGA-3 FATTY ACIDS
  5. PRISTIQ EXTENDED-RELEASE [Concomitant]
     Active Substance: DESVENLAFAXINE SUCCINATE
  6. ACETYLCARNITINE [Concomitant]
     Active Substance: ACETYLCARNITINE
  7. CALCIUM [Concomitant]
     Active Substance: CALCIUM
  8. MODAFINIL. [Concomitant]
     Active Substance: MODAFINIL
  9. GABAPENTIN. [Suspect]
     Active Substance: GABAPENTIN
     Indication: PAIN
     Dosage: ?          QUANTITY:1 TABLET(S);?
     Route: 048
     Dates: start: 20170201
  10. ZINC. [Concomitant]
     Active Substance: ZINC
  11. RED YEAST RICE [Concomitant]
     Active Substance: DIETARY SUPPLEMENT
  12. GABAPENTIN. [Suspect]
     Active Substance: GABAPENTIN
     Indication: MULTIPLE SCLEROSIS
     Dosage: ?          QUANTITY:1 TABLET(S);?
     Route: 048
     Dates: start: 20170201
  13. LEVOTHYROXINE. [Concomitant]
     Active Substance: LEVOTHYROXINE
  14. NALTREXONE 4.5MG (LOW DOSE) [Concomitant]
  15. ARICEPT [Concomitant]
     Active Substance: DONEPEZIL HYDROCHLORIDE
  16. COENZYME Q10 [Concomitant]
     Active Substance: UBIDECARENONE
  17. VITAMIN D [Concomitant]
     Active Substance: VITAMIN D NOS
  18. AMANTIDINE [Concomitant]
     Active Substance: AMANTADINE
  19. CYCLOBENZAPRINE. [Concomitant]
     Active Substance: CYCLOBENZAPRINE
  20. NIACINAMIDE [Concomitant]
     Active Substance: NIACINAMIDE
  21. CLOVES [Concomitant]
     Active Substance: CLOVE
  22. IRON [Concomitant]
     Active Substance: IRON

REACTIONS (3)
  - Tachycardia [None]
  - Dyspnoea [None]
  - Autoimmune thyroiditis [None]

NARRATIVE: CASE EVENT DATE: 20170531
